FAERS Safety Report 4276061-X (Version None)
Quarter: 2004Q1

REPORT INFORMATION
  Report Type: 
  Country: None (occurrence: None)
  Receive Date: 20040121
  Receipt Date: 20030725
  Transmission Date: 20041129
  Serious: No
  Sender: FDA-Public Use
  Company Number: US-GLAXOSMITHKLINE-A0418423A

PATIENT
  Sex: Female

DRUGS (3)
  1. VALTREX [Suspect]
     Route: 048
  2. ZOVIRAX [Suspect]
     Route: 065
  3. PREDNISONE [Concomitant]

REACTIONS (1)
  - MIGRAINE [None]
